FAERS Safety Report 6550692-6 (Version None)
Quarter: 2010Q1

REPORT INFORMATION
  Report Type: 
  Country: None (occurrence: None)
  Receive Date: 20100125
  Receipt Date: 20090917
  Transmission Date: 20100710
  Serious: No
  Sender: FDA-Public Use
  Company Number: US-TYCO HEALTHCARE/MALLINCKRODT-T200901737

PATIENT
  Sex: Female

DRUGS (3)
  1. OPTIRAY 350 [Suspect]
     Indication: COMPUTERISED TOMOGRAM
     Dosage: 100 ML, SINGLE
     Route: 042
     Dates: start: 20090911, end: 20090911
  2. PREDNISONE [Concomitant]
     Indication: PREMEDICATION
     Dosage: 40 MG, 12 HOURS PRIOR
     Dates: start: 20090901, end: 20090901
  3. PREDNISONE [Concomitant]
     Dosage: 40 MG, 2 HOURS PRIOR
     Dates: start: 20090911, end: 20090911

REACTIONS (2)
  - THROAT IRRITATION [None]
  - URTICARIA [None]
